FAERS Safety Report 8145980-6 (Version None)
Quarter: 2012Q1

REPORT INFORMATION
  Report Type: 
  Country: None (occurrence: None)
  Receive Date: 20120217
  Receipt Date: 20110708
  Transmission Date: 20120608
  Serious: No
  Sender: FDA-Public Use
  Company Number: US-ALLERGAN-1109259US

PATIENT
  Sex: Female

DRUGS (3)
  1. FINACEA [Concomitant]
     Indication: ACNE
     Dosage: 1 DF, QAM
     Route: 061
  2. DUAC [Concomitant]
     Indication: ACNE
     Dosage: 1 DF, QAM
     Route: 061
  3. TAZORAC [Suspect]
     Indication: ACNE
     Dosage: 1 DF, QHS
     Route: 061
     Dates: start: 20110201, end: 20110707

REACTIONS (1)
  - PREGNANCY [None]
